FAERS Safety Report 8141184-1 (Version None)
Quarter: 2012Q1

REPORT INFORMATION
  Report Type: 
  Country: None (occurrence: None)
  Receive Date: 20120216
  Receipt Date: 20120213
  Transmission Date: 20120608
  Serious: Yes (Hospitalization)
  Sender: FDA-Public Use
  Company Number: ES-AMGEN-ESPCT2012000532

PATIENT
  Age: 41 Year
  Sex: Female

DRUGS (5)
  1. BLINDED DENOSUMAB [Suspect]
     Indication: BREAST CANCER
     Dosage: UNK
     Route: 058
     Dates: start: 20101006
  2. DOXORUBICIN HCL [Concomitant]
     Dosage: UNK UNK, Q3WK
     Route: 042
     Dates: start: 20111006
  3. DOCETAXEL [Concomitant]
     Dosage: UNK UNK, Q3WK
     Route: 042
     Dates: start: 20111006
  4. BLINDED PLACEBO [Suspect]
     Indication: BREAST CANCER
     Dosage: UNK
     Route: 058
     Dates: start: 20101006
  5. CYCLOPHOSPHAMIDE [Concomitant]
     Dosage: UNK UNK, Q3WK
     Route: 042
     Dates: start: 20111006

REACTIONS (1)
  - PNEUMONIA [None]
